FAERS Safety Report 4807553-X (Version None)
Quarter: 2005Q4

REPORT INFORMATION
  Report Type: 
  Country: None (occurrence: None)
  Receive Date: 20051020
  Receipt Date: 20051007
  Transmission Date: 20060501
  Serious: Yes (Death, Other)
  Sender: FDA-Public Use
  Company Number: 2005S1000105

PATIENT
  Age: 64 Year
  Sex: Male

DRUGS (4)
  1. CUBICIN [Suspect]
     Indication: BACTERAEMIA
     Dosage: 6 MG/KG;Q2H;IV
     Route: 042
     Dates: end: 20050101
  2. CUBICIN [Suspect]
     Indication: DEVICE RELATED INFECTION
     Dosage: 6 MG/KG;Q2H;IV
     Route: 042
     Dates: end: 20050101
  3. CUBICIN [Suspect]
     Indication: STAPHYLOCOCCAL INFECTION
     Dosage: 6 MG/KG;Q2H;IV
     Route: 042
     Dates: end: 20050101
  4. VANCOMYCIN [Suspect]

REACTIONS (14)
  - ABSCESS [None]
  - CANDIDIASIS [None]
  - CATHETER SEPSIS [None]
  - CHOLECYSTITIS ACUTE [None]
  - CITROBACTER INFECTION [None]
  - DISSEMINATED INTRAVASCULAR COAGULATION [None]
  - ENTEROCOCCAL SEPSIS [None]
  - MYOCARDIAL INFARCTION [None]
  - PATHOGEN RESISTANCE [None]
  - PROCEDURAL COMPLICATION [None]
  - PYREXIA [None]
  - RENAL FAILURE ACUTE [None]
  - THROMBOCYTOPENIA [None]
  - WOUND INFECTION STAPHYLOCOCCAL [None]
